FAERS Safety Report 10384919 (Version 1)
Quarter: 2014Q3

REPORT INFORMATION
  Report Type: Spontaneous
  Country: US (occurrence: None)
  Receive Date: 20140813
  Receipt Date: 20140813
  Transmission Date: 20150326
  Serious: Yes (Other)
  Sender: FDA-Public Use
  Company Number: None

PATIENT
  Age: 42 Year
  Sex: Female
  Weight: 58.97 kg

DRUGS (2)
  1. DULOXETINE 60 MG TEVA [Suspect]
     Active Substance: DULOXETINE
     Indication: PAIN IN EXTREMITY
     Dosage: 1 PILL  TWICE DAILY TAKEN BY MOUTH
     Route: 048
  2. DULOXETINE 60 MG TEVA [Suspect]
     Active Substance: DULOXETINE
     Indication: OSTEOARTHRITIS
     Dosage: 1 PILL  TWICE DAILY TAKEN BY MOUTH
     Route: 048

REACTIONS (6)
  - Pain [None]
  - Product substitution issue [None]
  - Drug ineffective [None]
  - Headache [None]
  - Therapeutic response changed [None]
  - Abdominal discomfort [None]

NARRATIVE: CASE EVENT DATE: 20140514
